FAERS Safety Report 21470488 (Version 1)
Quarter: 2022Q4

REPORT INFORMATION
  Report Type: Spontaneous
  Country: US (occurrence: None)
  Receive Date: 20221017
  Receipt Date: 20221017
  Transmission Date: 20230112
  Serious: No
  Sender: FDA-Public Use
  Company Number: None

PATIENT
  Age: 74 Year
  Sex: Female

DRUGS (1)
  1. HUMIRA [Suspect]
     Active Substance: ADALIMUMAB
     Indication: Rheumatoid arthritis
     Dosage: 40 MG Q7 DAYS SQ?
     Route: 058
     Dates: start: 20211013

REACTIONS (4)
  - Syringe issue [None]
  - Device malfunction [None]
  - Drug dose omission by device [None]
  - Device defective [None]

NARRATIVE: CASE EVENT DATE: 20221014
